FAERS Safety Report 6055864-5 (Version None)
Quarter: 2009Q1

REPORT INFORMATION
  Report Type: 
  Country: None (occurrence: None)
  Receive Date: 20090126
  Receipt Date: 20090114
  Transmission Date: 20090719
  Serious: Yes (Life-Threatening)
  Sender: FDA-Public Use
  Company Number: 2008-04813

PATIENT
  Age: 75 Year
  Sex: Male
  Weight: 58 kg

DRUGS (2)
  1. VELCADE [Suspect]
     Indication: MULTIPLE MYELOMA
     Dosage: 2.1 MG UNK INTRAVENOUS
     Route: 042
     Dates: start: 20081203, end: 20081213
  2. DEXAMETHASONE [Concomitant]

REACTIONS (12)
  - ATRIOVENTRICULAR BLOCK FIRST DEGREE [None]
  - COUGH [None]
  - DYSPNOEA [None]
  - HAEMODIALYSIS [None]
  - LEFT VENTRICULAR FAILURE [None]
  - OEDEMA [None]
  - ORTHOPNOEA [None]
  - PERICARDIAL EFFUSION [None]
  - PULMONARY OEDEMA [None]
  - SINUS TACHYCARDIA [None]
  - URINE OUTPUT DECREASED [None]
  - WEIGHT INCREASED [None]
